FAERS Safety Report 9013107 (Version 1)
Quarter: 2013Q1

REPORT INFORMATION
  Report Type: Spontaneous
  Country: US (occurrence: US)
  Receive Date: 20130114
  Receipt Date: 20130114
  Transmission Date: 20140127
  Serious: Yes (Hospitalization)
  Sender: FDA-Public Use
  Company Number: US-BAXTER-2013BAX001091

PATIENT
  Sex: Male
  Weight: 77 kg

DRUGS (4)
  1. GAMMAGARD LIQUID [Suspect]
     Indication: HYPOGAMMAGLOBULINAEMIA
     Route: 042
     Dates: start: 20121002
  2. GAMMAGARD LIQUID [Suspect]
     Route: 042
     Dates: start: 20121030
  3. GAMMAGARD LIQUID [Suspect]
     Route: 042
     Dates: start: 20121122
  4. CARDURA [Concomitant]
     Indication: PRODUCT USED FOR UNKNOWN INDICATION
     Route: 065

REACTIONS (2)
  - Pneumonia [Recovered/Resolved]
  - Deep vein thrombosis [Recovered/Resolved]
